FAERS Safety Report 8189322-9 (Version None)
Quarter: 2012Q1

REPORT INFORMATION
  Report Type: 
  Country: None (occurrence: None)
  Receive Date: 20120307
  Receipt Date: 20120301
  Transmission Date: 20120608
  Serious: Yes (Hospitalization, Other)
  Sender: FDA-Public Use
  Company Number: US-CELGENEUS-163-21880-11121430

PATIENT
  Sex: Male

DRUGS (5)
  1. TEGRETOL [Suspect]
     Route: 065
  2. REVLIMID [Suspect]
     Indication: MULTIPLE MYELOMA
     Dosage: 25 MILLIGRAM
     Route: 048
     Dates: start: 20110131
  3. REVLIMID [Suspect]
     Dosage: 15MG-10MG
     Route: 048
     Dates: start: 20110501
  4. REVLIMID [Suspect]
     Dosage: 5 MILLIGRAM
     Route: 048
     Dates: start: 20120125
  5. REVLIMID [Suspect]
     Dosage: 5 MILLIGRAM
     Route: 048
     Dates: start: 20110101, end: 20111201

REACTIONS (4)
  - CHOLELITHIASIS [None]
  - PANCYTOPENIA [None]
  - DIARRHOEA [None]
  - PANCREATITIS [None]
